FAERS Safety Report 17038513 (Version 1)
Quarter: 2019Q4

REPORT INFORMATION
  Report Type: Report from Study
  Country: US (occurrence: US)
  Receive Date: 20191115
  Receipt Date: 20191115
  Transmission Date: 20200122
  Serious: Yes (Hospitalization, Other)
  Sender: FDA-Public Use
  Company Number: US-JNJFOC-20191116374

PATIENT
  Sex: Male

DRUGS (10)
  1. PROTONIX                           /00661201/ [Concomitant]
     Active Substance: OMEPRAZOLE
  2. ASPIRIN                            /00002701/ [Concomitant]
     Active Substance: ASPIRIN
  3. IRON [Concomitant]
     Active Substance: IRON
  4. MUCINEX [Concomitant]
     Active Substance: GUAIFENESIN
  5. MIRALAX [Concomitant]
     Active Substance: POLYETHYLENE GLYCOL 3350
  6. SIMVASTATIN. [Concomitant]
     Active Substance: SIMVASTATIN
  7. AMIODARONE [Concomitant]
     Active Substance: AMIODARONE
  8. IMBRUVICA [Suspect]
     Active Substance: IBRUTINIB
     Indication: MANTLE CELL LYMPHOMA
     Dosage: 560 MG, QD
     Route: 048
     Dates: start: 20180618, end: 20181228
  9. VORICONAZOLE. [Concomitant]
     Active Substance: VORICONAZOLE
  10. IMBRUVICA [Suspect]
     Active Substance: IBRUTINIB
     Dosage: 140 MG, QD
     Route: 048
     Dates: start: 20181229

REACTIONS (2)
  - Haemoglobin decreased [Unknown]
  - Pneumonia [Unknown]
